FAERS Safety Report 17112322 (Version 3)
Quarter: 2020Q1

REPORT INFORMATION
  Report Type: Report from Study
  Country: JP (occurrence: JP)
  Receive Date: 20191204
  Receipt Date: 20200226
  Transmission Date: 20200409
  Serious: Yes (Hospitalization, Other)
  Sender: FDA-Public Use
  Company Number: JP-ARRAY-2019-06314

PATIENT

DRUGS (17)
  1. BRAFTOVI [Suspect]
     Active Substance: ENCORAFENIB
     Dosage: 450 MG
     Route: 048
     Dates: start: 20191001, end: 20191020
  2. NEO MINOPHAGEN C [GLYCYRRHIZIC ACID, AMMONIUM SALT] [Concomitant]
     Indication: PROPHYLAXIS
     Dosage: 40 ML
     Route: 042
     Dates: start: 20190116, end: 20190128
  3. BRAFTOVI [Suspect]
     Active Substance: ENCORAFENIB
     Indication: MALIGNANT MELANOMA
     Dosage: 450 MG
     Route: 048
     Dates: start: 20190319, end: 20190730
  4. MEKTOVI [Suspect]
     Active Substance: BINIMETINIB
     Dosage: 30 MG
     Dates: start: 20190903, end: 20190908
  5. YERVOY [Suspect]
     Active Substance: IPILIMUMAB
     Indication: MALIGNANT MELANOMA
     Dosage: 3 MG/KG, Q3W
     Route: 041
     Dates: start: 20181030, end: 20181030
  6. BRAFTOVI [Suspect]
     Active Substance: ENCORAFENIB
     Dosage: 150 MG
     Route: 048
     Dates: start: 20190903, end: 20190908
  7. OPDIVO [Suspect]
     Active Substance: NIVOLUMAB
     Indication: MALIGNANT MELANOMA
     Dosage: 80 MG, Q3W
     Route: 042
     Dates: start: 20191030, end: 20191030
  8. OPDIVO [Suspect]
     Active Substance: NIVOLUMAB
     Dosage: 80 MG, Q3W
     Route: 041
     Dates: start: 20190116, end: 20190208
  9. MEKTOVI [Suspect]
     Active Substance: BINIMETINIB
     Dosage: 30 MG
     Dates: start: 20190827, end: 20190830
  10. THYRADIN [Suspect]
     Active Substance: LEVOTHYROXINE
     Indication: PRODUCT USED FOR UNKNOWN INDICATION
     Dosage: UNK
     Route: 065
  11. THYRADIN [Suspect]
     Active Substance: LEVOTHYROXINE
     Dosage: UNK
     Route: 065
  12. MEKTOVI [Suspect]
     Active Substance: BINIMETINIB
     Indication: MALIGNANT MELANOMA
     Dosage: 90 MG
     Dates: start: 20190319, end: 20190730
  13. MEKTOVI [Suspect]
     Active Substance: BINIMETINIB
     Dosage: 60 MG
     Dates: start: 20190909, end: 20190930
  14. BRAFTOVI [Suspect]
     Active Substance: ENCORAFENIB
     Dosage: 150 MG
     Route: 048
     Dates: start: 20190827, end: 20190830
  15. YERVOY [Suspect]
     Active Substance: IPILIMUMAB
     Dosage: 3 MG/KG, Q3W
     Route: 041
     Dates: start: 20190116, end: 20190208
  16. MEKTOVI [Suspect]
     Active Substance: BINIMETINIB
     Dosage: 90 MG
     Route: 048
     Dates: start: 20191001, end: 20191020
  17. BRAFTOVI [Suspect]
     Active Substance: ENCORAFENIB
     Dosage: 300 MG
     Route: 048
     Dates: start: 20190909, end: 20190930

REACTIONS (10)
  - Meningitis [Recovered/Resolved]
  - Hepatic function abnormal [Recovered/Resolved]
  - Pyrexia [Unknown]
  - Hepatic function abnormal [Recovered/Resolved]
  - Pyrexia [Recovered/Resolved]
  - Hepatic function abnormal [Recovering/Resolving]
  - Hepatic function abnormal [Recovered/Resolved]
  - Non-cardiogenic pulmonary oedema [Unknown]
  - Drug-induced liver injury [Recovered/Resolved]
  - Myalgia [Not Recovered/Not Resolved]

NARRATIVE: CASE EVENT DATE: 20181105
